FAERS Safety Report 23966453 (Version 2)
Quarter: 2024Q3

REPORT INFORMATION
  Report Type: Spontaneous
  Country: RO (occurrence: RO)
  Receive Date: 20240612
  Receipt Date: 20240731
  Transmission Date: 20241016
  Serious: Yes (Death, Hospitalization, Other)
  Sender: ACCORD
  Company Number: RO-Accord-425836

PATIENT
  Age: 54 Year
  Sex: Female

DRUGS (3)
  1. METHOTREXATE [Suspect]
     Active Substance: METHOTREXATE
     Indication: Rheumatoid arthritis
     Dates: end: 202206
  2. LEFLUNOMIDE [Suspect]
     Active Substance: LEFLUNOMIDE
     Indication: Rheumatoid arthritis
     Dosage: FILM-COATED TABLET
     Dates: end: 202206
  3. ADALIMUMAB [Suspect]
     Active Substance: ADALIMUMAB\ISOPROPYL ALCOHOL
     Indication: Rheumatoid arthritis
     Dates: end: 202206

REACTIONS (14)
  - Renal impairment [Fatal]
  - Gastrointestinal disorder [Unknown]
  - Disseminated tuberculosis [Fatal]
  - Hepatitis C [Unknown]
  - Clostridium difficile colitis [Fatal]
  - Cardio-respiratory arrest [Fatal]
  - Pleural effusion [Fatal]
  - Septic shock [Fatal]
  - Candida infection [Fatal]
  - Pseudomonas infection [Fatal]
  - Hypertension [Fatal]
  - Endocarditis [Fatal]
  - Hyperlactacidaemia [Fatal]
  - Metabolic acidosis [Fatal]
